FAERS Safety Report 9477978 (Version 1)
Quarter: 2013Q3

REPORT INFORMATION
  Report Type: Spontaneous
  Country: US (occurrence: US)
  Receive Date: 20130827
  Receipt Date: 20130827
  Transmission Date: 20140515
  Serious: Yes (Hospitalization, Other)
  Sender: FDA-Public Use
  Company Number: US-AMGEN-USASP2013059768

PATIENT
  Age: 84 Year
  Sex: Female
  Weight: 86.17 kg

DRUGS (20)
  1. ENBREL [Suspect]
     Indication: PRODUCT USED FOR UNKNOWN INDICATION
     Dosage: 50 MG, 2 TIMES/WK
     Route: 058
  2. PLAQUENIL                          /00072602/ [Concomitant]
     Dosage: 200 MG, UNK
  3. ASTELIN                            /00085801/ [Concomitant]
     Dosage: 137 MUG, UNK
  4. LIPITOR [Concomitant]
     Dosage: 10 MG, UNK
  5. DIOVAN [Concomitant]
     Dosage: 160 MG, UNK
  6. IMDUR [Concomitant]
     Dosage: 30 MG, UNK
  7. ATENOLOL [Concomitant]
     Dosage: 50 MG, UNK
  8. FOLIC ACID [Concomitant]
     Dosage: 1 MG, UNK
  9. MOMETASONE [Concomitant]
     Dosage: 0.1%, UNK
  10. IBUPROFEN [Concomitant]
     Dosage: 600 MG, UNK
  11. PREDNISONE [Concomitant]
     Dosage: 5 MG, UNK
  12. VITAMIN C                          /00008001/ [Concomitant]
     Dosage: 500 MG, UNK
  13. VITAMIN D                          /00107901/ [Concomitant]
     Dosage: 1000 UNIT, UNK
  14. VITAMIN B COMPLEX [Concomitant]
     Dosage: UNK
  15. MULTIVITAMINS, PLAIN [Concomitant]
     Dosage: UNK
  16. LYSINE [Concomitant]
     Dosage: 500 MG, UNK
  17. OMEGA 3                            /01334101/ [Concomitant]
     Dosage: 1000 MG, UNK
  18. MAGNESIUM [Concomitant]
     Dosage: 300 MG, UNK
  19. CITRACAL + D                       /01438101/ [Concomitant]
     Dosage: UNK
  20. ASPIRIN LOW [Concomitant]
     Dosage: 81 MG, UNK

REACTIONS (3)
  - Squamous cell carcinoma [Unknown]
  - Coronary artery bypass [Unknown]
  - Eye infection [Recovered/Resolved]
